FAERS Safety Report 8335544-3 (Version None)
Quarter: 2012Q2

REPORT INFORMATION
  Report Type: 
  Country: None (occurrence: None)
  Receive Date: 20120503
  Receipt Date: 20120425
  Transmission Date: 20120825
  Serious: Yes (Other)
  Sender: FDA-Public Use
  Company Number: US-ABBOTT-12P-163-0929560-00

PATIENT
  Age: 41 Year
  Sex: Female

DRUGS (9)
  1. ASACOL [Concomitant]
     Indication: CROHN'S DISEASE
     Dosage: 500MG 2 TABLETS THREE TIMES A DAY
  2. HUMIRA [Suspect]
  3. GABAPENTIN [Concomitant]
     Indication: CROHN'S DISEASE
  4. FLEXERIL [Concomitant]
     Indication: MYALGIA
  5. HUMIRA [Suspect]
     Indication: CROHN'S DISEASE
     Dates: start: 20120330, end: 20120330
  6. HUMIRA [Suspect]
     Dates: start: 20120413, end: 20120413
  7. TRAZODONE HCL [Concomitant]
     Indication: CROHN'S DISEASE
     Dosage: AT BEDTIME
  8. HYDROCODONE [Concomitant]
     Indication: CROHN'S DISEASE
  9. ENTOCORT EC [Concomitant]
     Indication: CROHN'S DISEASE

REACTIONS (11)
  - FISTULA [None]
  - MALAISE [None]
  - INTESTINAL OBSTRUCTION [None]
  - SINUSITIS [None]
  - UPPER RESPIRATORY TRACT INFECTION [None]
  - EAR INFECTION [None]
  - WEIGHT DECREASED [None]
  - INJECTION SITE PAIN [None]
  - DIARRHOEA [None]
  - INJECTION SITE SWELLING [None]
  - INFLUENZA [None]
